FAERS Safety Report 24951299 (Version 1)
Quarter: 2025Q1

REPORT INFORMATION
  Report Type: Spontaneous
  Country: CN (occurrence: CN)
  Receive Date: 20250210
  Receipt Date: 20250210
  Transmission Date: 20250409
  Serious: Yes (Other)
  Sender: BAYER HEALTHCARE PHARMACEUTICALS INC.
  Company Number: CN-BAYER-2025A018816

PATIENT
  Age: 59 Year
  Sex: Male
  Weight: 55 kg

DRUGS (2)
  1. STIVARGA [Suspect]
     Active Substance: REGORAFENIB MONOHYDRATE
     Indication: Hepatic cancer
     Dosage: 160 MG, QD
     Route: 048
     Dates: start: 20241008, end: 20250202
  2. SINTILIMAB [Concomitant]
     Active Substance: SINTILIMAB
     Indication: Monoclonal antibody unconjugated therapy
     Route: 041
     Dates: start: 20241008

REACTIONS (2)
  - Myelosuppression [Unknown]
  - Asthenia [None]

NARRATIVE: CASE EVENT DATE: 20250101
